FAERS Safety Report 4299922-4 (Version None)
Quarter: 2004Q1

REPORT INFORMATION
  Report Type: 
  Country: None (occurrence: None)
  Receive Date: 20040220
  Receipt Date: 20040212
  Transmission Date: 20041129
  Serious: Yes (Other)
  Sender: FDA-Public Use
  Company Number: 200411086US

PATIENT
  Sex: 0

DRUGS (1)
  1. ANZEMET [Suspect]
     Dosage: DOSE: NOT PROVIDED
     Route: 042

REACTIONS (1)
  - SEDATION [None]
